FAERS Safety Report 10619393 (Version 1)
Quarter: 2014Q4

REPORT INFORMATION
  Report Type: Spontaneous
  Country: CN (occurrence: CN)
  Receive Date: 20141202
  Receipt Date: 20141202
  Transmission Date: 20150529
  Serious: Yes (Life-Threatening, Other)
  Sender: FDA-Public Use
  Company Number: CN-009507513-1411CHN012407

PATIENT
  Sex: Female

DRUGS (1)
  1. ROCURONIUM BROMIDE. [Suspect]
     Active Substance: ROCURONIUM BROMIDE
     Indication: ALLERGY TEST
     Dosage: UNK UNK, ONCE
     Route: 023

REACTIONS (3)
  - Anaphylactic reaction [Unknown]
  - Hypotension [Unknown]
  - Cardiac arrest [Unknown]
